FAERS Safety Report 9604551 (Version 3)
Quarter: 2014Q1

REPORT INFORMATION
  Report Type: Spontaneous
  Country: US (occurrence: US)
  Receive Date: 20131008
  Receipt Date: 20140108
  Transmission Date: 20141002
  Serious: Yes (Disabling, Other)
  Sender: FDA-Public Use
  Company Number: US-PFIZER INC-2013286604

PATIENT
  Age: 59 Year
  Sex: Female
  Weight: 95.2 kg

DRUGS (6)
  1. NEURONTIN [Suspect]
     Indication: MUSCLE SPASMS
     Dosage: 300 MG, 4X/DAY (1 TAB AM, 1 TAB NOON, 2 TABS PM)
     Route: 048
     Dates: start: 200905
  2. NEURONTIN [Suspect]
     Indication: PAIN IN EXTREMITY
  3. NEURONTIN [Suspect]
     Indication: PARAESTHESIA
  4. LISINOPRIL [Concomitant]
     Indication: HYPERTENSION
     Dosage: 20 MG, 1X/DAY
     Dates: start: 201012
  5. BACLOFEN [Concomitant]
     Dosage: 10 MG, 3X/DAY
     Dates: start: 200905
  6. METFORMIN [Concomitant]
     Indication: DIABETES MELLITUS
     Dosage: 1000 MG, 2X/DAY
     Dates: start: 201111

REACTIONS (3)
  - Off label use [Unknown]
  - Multiple sclerosis [Recovering/Resolving]
  - Abasia [Not Recovered/Not Resolved]
